FAERS Safety Report 11865005 (Version 1)
Quarter: 2015Q4

REPORT INFORMATION
  Report Type: Spontaneous
  Country: US (occurrence: US)
  Receive Date: 20151223
  Receipt Date: 20151223
  Transmission Date: 20160305
  Serious: No
  Sender: FDA-Public Use
  Company Number: US-BAYER-2015-491473

PATIENT
  Age: 13 Year
  Sex: Female
  Weight: 52.15 kg

DRUGS (1)
  1. MIRALAX [Suspect]
     Active Substance: POLYETHYLENE GLYCOL 3350
     Indication: CONSTIPATION
     Dosage: UNK UNK, BID
     Route: 048
     Dates: start: 2011

REACTIONS (3)
  - Wrong technique in product usage process [None]
  - Off label use [None]
  - Drug prescribing error [None]

NARRATIVE: CASE EVENT DATE: 2011
